FAERS Safety Report 18867855 (Version 1)
Quarter: 2021Q1

REPORT INFORMATION
  Report Type: Spontaneous
  Country: GB (occurrence: GB)
  Receive Date: 20210209
  Receipt Date: 20210209
  Transmission Date: 20210420
  Serious: Yes (Other)
  Sender: FDA-Public Use
  Company Number: GB-GLAXOSMITHKLINE-GB2021025805

PATIENT
  Age: 35 Year
  Sex: Female
  Weight: 85 kg

DRUGS (7)
  1. CLOTRIMAZOLE. [Concomitant]
     Active Substance: CLOTRIMAZOLE
     Indication: PRODUCT USED FOR UNKNOWN INDICATION
     Dosage: UNK UNK, QD (APPLY 2?3 TIMES/DAY)
     Route: 065
     Dates: start: 20201226, end: 20210102
  2. DESOGESTREL [Concomitant]
     Active Substance: DESOGESTREL
     Indication: PRODUCT USED FOR UNKNOWN INDICATION
     Dosage: 1 DF, QD
     Route: 065
     Dates: start: 20210120
  3. HYDROCORTISONE. [Concomitant]
     Active Substance: HYDROCORTISONE
     Indication: PRODUCT USED FOR UNKNOWN INDICATION
     Dosage: UNK (APPLY AS DIRECTED TO FOREHEAD)
     Route: 065
     Dates: start: 20201119, end: 20201120
  4. ONDANSETRON [Concomitant]
     Active Substance: ONDANSETRON
     Indication: PRODUCT USED FOR UNKNOWN INDICATION
     Dosage: 1 DF (AS PER CONSULTANT)
     Route: 065
     Dates: start: 20201103, end: 20201124
  5. DUAC [Suspect]
     Active Substance: BENZOYL PEROXIDE\CLINDAMYCIN PHOSPHATE
     Indication: PRODUCT USED FOR UNKNOWN INDICATION
     Dosage: UNK UNK, QD (APPLY AT NIGHT)
     Route: 065
     Dates: start: 20210120
  6. CLOBETASONE BUTYRATE [Concomitant]
     Active Substance: CLOBETASONE BUTYRATE
     Indication: PRODUCT USED FOR UNKNOWN INDICATION
     Dosage: UNK UNK, QD (APPLY 1?2 TIMES/DAY TO HANDS)
     Route: 065
     Dates: start: 20201119, end: 20201203
  7. PIVMECILLINAM [Concomitant]
     Active Substance: AMDINOCILLIN PIVOXIL
     Indication: PRODUCT USED FOR UNKNOWN INDICATION
     Dosage: UNK (TAKE TWO TABLETS INITIALLY THEN ONE TABLET THRE...)
     Route: 065
     Dates: start: 20201226, end: 20201229

REACTIONS (2)
  - Swelling face [Recovering/Resolving]
  - Erythema [Recovering/Resolving]

NARRATIVE: CASE EVENT DATE: 20210124
